FAERS Safety Report 5193974-5 (Version None)
Quarter: 2006Q4

REPORT INFORMATION
  Report Type: 
  Country: None (occurrence: None)
  Receive Date: 20061228
  Receipt Date: 20060419
  Transmission Date: 20070319
  Serious: No
  Sender: FDA-Public Use
  Company Number: US-GLAXOSMITHKLINE-A0602482A

PATIENT
  Age: 80 Year
  Sex: Female

DRUGS (9)
  1. FLOVENT [Suspect]
     Indication: ASTHMA
     Dosage: 2PUFF TWICE PER DAY
     Route: 055
  2. ALLERGY SHOTS [Concomitant]
  3. NASACORT AQ [Concomitant]
  4. CLARINEX [Concomitant]
  5. LIPITOR [Concomitant]
  6. CARTIA XT [Concomitant]
  7. XANAX [Concomitant]
  8. FOSAMAX [Concomitant]
  9. ZOLOFT [Concomitant]

REACTIONS (3)
  - COUGH [None]
  - DRUG INEFFECTIVE [None]
  - PHARMACEUTICAL PRODUCT COMPLAINT [None]
